FAERS Safety Report 12293559 (Version 2)
Quarter: 2016Q4

REPORT INFORMATION
  Report Type: Spontaneous
  Country: US (occurrence: US)
  Receive Date: 20160421
  Receipt Date: 20161013
  Transmission Date: 20170207
  Serious: No
  Sender: FDA-Public Use
  Company Number: US-TAKEDA-2016MPI002943

PATIENT
  Age: 78 Year
  Sex: Male
  Weight: 92.97 kg

DRUGS (2)
  1. NINLARO [Suspect]
     Active Substance: IXAZOMIB
     Indication: PLASMA CELL MYELOMA
     Dosage: 3 MG, UNK
     Route: 048
  2. DEXAMETHASONE. [Concomitant]
     Active Substance: DEXAMETHASONE
     Indication: PLASMA CELL MYELOMA
     Dosage: UNK
     Route: 065

REACTIONS (5)
  - Light chain analysis increased [Unknown]
  - Therapy change [Unknown]
  - Off label use [Unknown]
  - Gait disturbance [Unknown]
  - Sciatica [Unknown]

NARRATIVE: CASE EVENT DATE: 20160412
